FAERS Safety Report 15682556 (Version 2)
Quarter: 2018Q4

REPORT INFORMATION
  Report Type: Spontaneous
  Country: US (occurrence: US)
  Receive Date: 20181203
  Receipt Date: 20181213
  Transmission Date: 20190205
  Serious: No
  Sender: FDA-Public Use
  Company Number: US-PFIZER INC-2018488551

PATIENT
  Age: 57 Year
  Sex: Female

DRUGS (1)
  1. THEOPHYLLINE [Suspect]
     Active Substance: THEOPHYLLINE ANHYDROUS
     Dosage: UNK

REACTIONS (3)
  - Vomiting [Unknown]
  - Nausea [Unknown]
  - Drug hypersensitivity [Unknown]
